FAERS Safety Report 7686699-5 (Version None)
Quarter: 2011Q3

REPORT INFORMATION
  Report Type: 
  Country: None (occurrence: None)
  Receive Date: 20110816
  Receipt Date: 20110808
  Transmission Date: 20111222
  Serious: Yes (Death, Hospitalization)
  Sender: FDA-Public Use
  Company Number: US-ACTELION-A-US2011-52606

PATIENT

DRUGS (3)
  1. TRACLEER [Suspect]
     Indication: PULMONARY ARTERIAL HYPERTENSION
     Dosage: UNK
     Route: 048
     Dates: start: 20091106
  2. REVATIO [Concomitant]
  3. COUMADIN [Concomitant]

REACTIONS (3)
  - DIALYSIS [None]
  - DEATH [None]
  - RENAL FAILURE [None]
